FAERS Safety Report 7224587-9 (Version None)
Quarter: 2011Q1

REPORT INFORMATION
  Report Type: 
  Country: None (occurrence: None)
  Receive Date: 20110113
  Receipt Date: 20110106
  Transmission Date: 20110831
  Serious: No
  Sender: FDA-Public Use
  Company Number: US-PFIZER INC-2011004755

PATIENT
  Sex: Female

DRUGS (5)
  1. ALPRAZOLAM [Suspect]
  2. SINEQUAN [Suspect]
  3. STELAZINE [Suspect]
  4. GEMFIBROZIL [Suspect]
     Indication: BLOOD CHOLESTEROL INCREASED
     Dosage: 600 MG, UNK
     Dates: start: 20101101
  5. WELLBUTRIN [Suspect]

REACTIONS (2)
  - MOOD SWINGS [None]
  - INSOMNIA [None]
